FAERS Safety Report 10662951 (Version 1)
Quarter: 2014Q4

REPORT INFORMATION
  Report Type: Spontaneous
  Country: US (occurrence: US)
  Receive Date: 20141218
  Receipt Date: 20141218
  Transmission Date: 20150529
  Serious: No
  Sender: FDA-Public Use
  Company Number: US-GLAXOSMITHKLINE-A1066514A

PATIENT

DRUGS (9)
  1. WARFARIN [Concomitant]
     Active Substance: WARFARIN
  2. MVI [Concomitant]
     Active Substance: VITAMINS
  3. LOVASTATIN. [Concomitant]
     Active Substance: LOVASTATIN
  4. LISINOPRIL. [Concomitant]
     Active Substance: LISINOPRIL
  5. DIGOXIN. [Concomitant]
     Active Substance: DIGOXIN
  6. FLUTICASONE NASAL SPRAY [Concomitant]
     Active Substance: FLUTICASONE\FLUTICASONE PROPIONATE
  7. COREG CR [Suspect]
     Active Substance: CARVEDILOL PHOSPHATE
     Indication: HYPERTENSION
     Route: 048
     Dates: start: 20140310
  8. GLYBURIDE. [Concomitant]
     Active Substance: GLYBURIDE
  9. BRIMONIDINE EYE DROPS, SOLUTION [Concomitant]

REACTIONS (1)
  - Blood pressure increased [Not Recovered/Not Resolved]

NARRATIVE: CASE EVENT DATE: 20140319
